FAERS Safety Report 6249652-4 (Version None)
Quarter: 2009Q2

REPORT INFORMATION
  Report Type: 
  Country: None (occurrence: None)
  Receive Date: 20090629
  Receipt Date: 20090619
  Transmission Date: 20091009
  Serious: Yes (Hospitalization)
  Sender: FDA-Public Use
  Company Number: US-EISAI INC.-E2080-00174-SPO-US

PATIENT
  Age: 49 Year
  Sex: Female

DRUGS (3)
  1. BANZEL [Suspect]
     Indication: LENNOX-GASTAUT SYNDROME
     Route: 048
     Dates: start: 20090409, end: 20090601
  2. ZONISAMIDE [Concomitant]
  3. TOPAMAX [Concomitant]

REACTIONS (2)
  - CONVULSION [None]
  - LIVER FUNCTION TEST ABNORMAL [None]
